FAERS Safety Report 6255105-X (Version None)
Quarter: 2009Q3

REPORT INFORMATION
  Report Type: 
  Country: None (occurrence: None)
  Receive Date: 20090702
  Receipt Date: 20090622
  Transmission Date: 20100115
  Serious: Yes (Hospitalization)
  Sender: FDA-Public Use
  Company Number: HU-TEVA-199540ISR

PATIENT
  Sex: Female
  Weight: 61 kg

DRUGS (10)
  1. FOLINIC ACID [Suspect]
     Indication: RECTOSIGMOID CANCER
     Route: 041
     Dates: start: 20090511
  2. FLUOROURACIL [Suspect]
     Indication: RECTOSIGMOID CANCER
     Route: 041
     Dates: start: 20090511
  3. FLUOROURACIL [Suspect]
     Route: 041
     Dates: start: 20090511
  4. DEXTROSE 5% [Suspect]
     Indication: MEDICATION DILUTION
     Route: 041
     Dates: start: 20090511
  5. SODIUM CHLORIDE [Suspect]
     Indication: MEDICATION DILUTION
     Route: 041
  6. SODIUM CHLORIDE [Suspect]
     Route: 041
  7. ONDANSETRON [Suspect]
     Indication: ANTIEMETIC SUPPORTIVE CARE
     Dates: start: 20090511
  8. OXALIPLATIN [Suspect]
     Indication: RECTOSIGMOID CANCER
     Route: 041
     Dates: start: 20090511
  9. FAMOTIDINE [Suspect]
     Dates: start: 20090511
  10. ALPRAZOLAM [Suspect]
     Dates: start: 20090511

REACTIONS (7)
  - ANGINA PECTORIS [None]
  - BLOOD LACTATE DEHYDROGENASE INCREASED [None]
  - CHEST PAIN [None]
  - DYSPNOEA [None]
  - FALL [None]
  - PALLOR [None]
  - URINARY INCONTINENCE [None]
